FAERS Safety Report 22116886 (Version 1)
Quarter: 2023Q1

REPORT INFORMATION
  Report Type: Spontaneous
  Country: US (occurrence: US)
  Receive Date: 20230320
  Receipt Date: 20230320
  Transmission Date: 20230418
  Serious: Yes (Other)
  Sender: FDA-Public Use
  Company Number: US-AMERICAN REGENT INC-2023000656

PATIENT
  Sex: Female

DRUGS (11)
  1. ESMOLOL HYDROCHLORIDE [Suspect]
     Active Substance: ESMOLOL HYDROCHLORIDE
     Indication: Atrial tachycardia
     Dosage: UNK INFUSION STARTING POD 18
     Route: 042
  2. ESMOLOL HYDROCHLORIDE [Suspect]
     Active Substance: ESMOLOL HYDROCHLORIDE
     Dosage: INFUSION UP TO 250 MCG/KG/MIN STARTING POD 37
     Route: 042
  3. AMIODARONE [Concomitant]
     Active Substance: AMIODARONE
     Indication: Haemodynamic instability
     Dosage: 7 MCG/KG/MIN STARTING POD 10
     Route: 042
  4. AMIODARONE [Concomitant]
     Active Substance: AMIODARONE
     Indication: Atrial tachycardia
     Dosage: 1 MG/KG BOLUS, PRN (X10)
     Route: 042
  5. AMIODARONE [Concomitant]
     Active Substance: AMIODARONE
     Dosage: 3.5 MCG/KG/MIN STARTING POD 12 FOR CONTINUED MAINTENANCE DOSING
     Route: 042
  6. AMIODARONE [Concomitant]
     Active Substance: AMIODARONE
     Dosage: 7.5 MCG/KG/MIN STARTING POD 18
     Route: 042
  7. PROCAINAMIDE HYDROCHLORIDE [Concomitant]
     Active Substance: PROCAINAMIDE HYDROCHLORIDE
     Indication: Atrial tachycardia
     Dosage: 14 MG/KG (POD 18)
  8. PROCAINAMIDE HYDROCHLORIDE [Concomitant]
     Active Substance: PROCAINAMIDE HYDROCHLORIDE
     Dosage: 40 MCG/KG/MIN (POD 18)
     Route: 042
  9. PROCAINAMIDE HYDROCHLORIDE [Concomitant]
     Active Substance: PROCAINAMIDE HYDROCHLORIDE
     Dosage: UNK, DRIP TITRATED
  10. IVABRADINE [Concomitant]
     Active Substance: IVABRADINE
     Indication: Atrial tachycardia
     Dosage: 0.1 MG/KG/DOSE, TWICE A DAY
     Route: 042
  11. IVABRADINE [Concomitant]
     Active Substance: IVABRADINE
     Dosage: 0.1 MG/KG/DOSE, 3 TIMES A DAY
     Route: 042

REACTIONS (2)
  - Hypotension [Recovered/Resolved]
  - Product use issue [Unknown]
